FAERS Safety Report 8600729-5 (Version None)
Quarter: 2012Q3

REPORT INFORMATION
  Report Type: 
  Country: None (occurrence: None)
  Receive Date: 20120817
  Receipt Date: 20120809
  Transmission Date: 20120928
  Serious: Yes (Hospitalization)
  Sender: FDA-Public Use
  Company Number: US-BAYER-2012-032606

PATIENT
  Age: 36 Year
  Sex: Female
  Weight: 71.2 kg

DRUGS (2)
  1. IBUPROFEN [Concomitant]
     Dosage: 800 MG,1 TABLET EVERY 8 HOURS AS NEEDED
     Route: 048
  2. YASMIN [Suspect]
     Indication: CONTRACEPTION
     Dosage: UNK
     Dates: start: 20090701, end: 20100801

REACTIONS (7)
  - NAUSEA [None]
  - VOMITING [None]
  - PAIN [None]
  - INJURY [None]
  - ABDOMINAL PAIN [None]
  - CHOLELITHIASIS [None]
  - GALLBLADDER DISORDER [None]
